FAERS Safety Report 15580439 (Version 1)
Quarter: 2018Q4

REPORT INFORMATION
  Report Type: Spontaneous
  Country: US (occurrence: US)
  Receive Date: 20181102
  Receipt Date: 20181102
  Transmission Date: 20190205
  Serious: Yes (Hospitalization)
  Sender: FDA-Public Use
  Company Number: US-ASTRAZENECA-2014SE54233

PATIENT
  Age: 63 Year
  Sex: Male
  Weight: 77.1 kg

DRUGS (3)
  1. FARXIGA [Suspect]
     Active Substance: DAPAGLIFLOZIN PROPANEDIOL
     Indication: TYPE 2 DIABETES MELLITUS
     Route: 048
  2. FARXIGA [Suspect]
     Active Substance: DAPAGLIFLOZIN PROPANEDIOL
     Indication: TYPE 2 DIABETES MELLITUS
     Route: 048
     Dates: start: 201403
  3. METFORMIN [Concomitant]
     Active Substance: METFORMIN HYDROCHLORIDE

REACTIONS (16)
  - Duodenal perforation [Recovering/Resolving]
  - Nodule [Recovering/Resolving]
  - Multiple organ dysfunction syndrome [Recovering/Resolving]
  - Impaired healing [Recovering/Resolving]
  - Glucose urine present [Unknown]
  - Specific gravity body fluid increased [Unknown]
  - Urine analysis abnormal [Unknown]
  - Pyrexia [Recovering/Resolving]
  - Hypoaesthesia [Not Recovered/Not Resolved]
  - Dehydration [Unknown]
  - Renal failure [Recovering/Resolving]
  - Incisional hernia [Recovering/Resolving]
  - Abdominal wall wound [Recovering/Resolving]
  - Pancreatitis [Recovering/Resolving]
  - Musculoskeletal procedural complication [Recovering/Resolving]
  - Malaise [Recovering/Resolving]

NARRATIVE: CASE EVENT DATE: 2014
